FAERS Safety Report 7929800-8 (Version None)
Quarter: 2011Q4

REPORT INFORMATION
  Report Type: 
  Country: None (occurrence: None)
  Receive Date: 20111121
  Receipt Date: 20111111
  Transmission Date: 20120403
  Serious: Yes (Other)
  Sender: FDA-Public Use
  Company Number: KR-JNJFOC-20111105396

PATIENT
  Age: 59 Year
  Sex: Male

DRUGS (1)
  1. NIZORAL [Suspect]
     Indication: PRODUCT USED FOR UNKNOWN INDICATION
     Route: 061
     Dates: start: 20111111, end: 20111111

REACTIONS (4)
  - RASH [None]
  - SKIN EXFOLIATION [None]
  - HYPOKINESIA [None]
  - PYREXIA [None]
